FAERS Safety Report 7554700-5 (Version None)
Quarter: 2011Q2

REPORT INFORMATION
  Report Type: 
  Country: None (occurrence: None)
  Receive Date: 20110617
  Receipt Date: 20110609
  Transmission Date: 20111010
  Serious: Yes (Other)
  Sender: FDA-Public Use
  Company Number: CA-PFIZER INC-2011132467

PATIENT
  Age: 18 Year
  Sex: Female
  Weight: 62 kg

DRUGS (11)
  1. CISPLATIN [Concomitant]
     Dosage: UNK
     Route: 042
  2. DOCUSATE SODIUM [Concomitant]
     Dosage: UNK
     Route: 048
  3. DOXORUBICIN [Concomitant]
     Dosage: UNK
     Route: 042
  4. GABAPENTIN [Concomitant]
     Dosage: UNK
     Route: 048
  5. LANSOPRAZOLE [Concomitant]
     Dosage: UNK
     Route: 048
  6. ONDANSETRON [Concomitant]
     Dosage: UNK
     Route: 042
  7. MORPHINE SULFATE [Suspect]
     Dosage: 60 MG, 3X/DAY
     Route: 048
  8. CESAMET [Suspect]
     Dosage: 0.5 MG, 2X/DAY
     Route: 048
  9. AMITRIPTYLINE [Concomitant]
     Dosage: UNK
     Route: 048
  10. EMEND [Concomitant]
     Dosage: UNK
     Route: 048
  11. KETOTIFEN [Concomitant]
     Dosage: UNK
     Route: 048

REACTIONS (5)
  - PO2 DECREASED [None]
  - RESPIRATORY RATE DECREASED [None]
  - DISORIENTATION [None]
  - MIOSIS [None]
  - TOXICITY TO VARIOUS AGENTS [None]
